FAERS Safety Report 11877404 (Version 1)
Quarter: 2015Q4

REPORT INFORMATION
  Report Type: Report from Study
  Country: US (occurrence: US)
  Receive Date: 20151229
  Receipt Date: 20151229
  Transmission Date: 20160305
  Serious: Yes (Hospitalization)
  Sender: FDA-Public Use
  Company Number: US-EXELIXIS-CABO-15005875

PATIENT
  Age: 65 Year
  Sex: Female

DRUGS (2)
  1. COMETRIQ [Suspect]
     Active Substance: CABOZANTINIB S-MALATE
     Indication: HEPATIC CANCER
     Dosage: 140 MG, QD
     Route: 048
     Dates: start: 20150603, end: 20150817
  2. COMETRIQ [Suspect]
     Active Substance: CABOZANTINIB S-MALATE
     Dosage: 60 MG, QD
     Route: 048
     Dates: start: 201510, end: 20151120

REACTIONS (13)
  - Fatigue [Unknown]
  - Sepsis [Unknown]
  - Malnutrition [Unknown]
  - Headache [Unknown]
  - Hepatitis C [Unknown]
  - Mucosal inflammation [Unknown]
  - Off label use [Unknown]
  - Chest pain [Recovered/Resolved]
  - Oedema peripheral [Unknown]
  - Portal vein thrombosis [Unknown]
  - Pancytopenia [Unknown]
  - Hypocalcaemia [Unknown]
  - Ascites [Unknown]

NARRATIVE: CASE EVENT DATE: 20151120
